FAERS Safety Report 25813188 (Version 1)
Quarter: 2025Q3

REPORT INFORMATION
  Report Type: Spontaneous
  Country: CN (occurrence: CN)
  Receive Date: 20250917
  Receipt Date: 20250917
  Transmission Date: 20251020
  Serious: Yes (Life-Threatening, Hospitalization)
  Sender: PFIZER
  Company Number: CN-PFIZER INC-PV202500111421

PATIENT
  Age: 70 Year
  Sex: Female
  Weight: 53 kg

DRUGS (5)
  1. PACLITAXEL [Suspect]
     Active Substance: PACLITAXEL
     Indication: Endometrial cancer
     Dosage: 267 MG, 1X/DAY
     Route: 041
     Dates: start: 20250910, end: 20250910
  2. CARBOPLATIN [Suspect]
     Active Substance: CARBOPLATIN
     Indication: Endometrial cancer
     Dosage: 464 MG, 1X/DAY
     Route: 041
     Dates: start: 20250910, end: 20250910
  3. LANSOPRAZOLE [Concomitant]
     Active Substance: LANSOPRAZOLE
  4. AMIFOSTINE [Concomitant]
     Active Substance: AMIFOSTINE
  5. AZASETRON [Concomitant]
     Active Substance: AZASETRON

REACTIONS (12)
  - Disseminated intravascular coagulation [Recovering/Resolving]
  - Blood pressure decreased [Recovering/Resolving]
  - Chest discomfort [Recovering/Resolving]
  - Vomiting [Recovering/Resolving]
  - Nausea [Recovering/Resolving]
  - Drug hypersensitivity [Recovering/Resolving]
  - Tachypnoea [Recovering/Resolving]
  - Pulmonary oedema [Recovering/Resolving]
  - Cardiomegaly [Recovering/Resolving]
  - Cardiac failure [Recovering/Resolving]
  - Blood pressure increased [Recovering/Resolving]
  - Off label use [Unknown]

NARRATIVE: CASE EVENT DATE: 20250910
